FAERS Safety Report 11116784 (Version 1)
Quarter: 2015Q2

REPORT INFORMATION
  Report Type: Report from Study
  Country: NL (occurrence: NL)
  Receive Date: 20150515
  Receipt Date: 20150515
  Transmission Date: 20150821
  Serious: Yes (Hospitalization)
  Sender: FDA-Public Use
  Company Number: NL-ABBVIE-15P-114-1349061-00

PATIENT
  Age: 43 Year
  Sex: Female

DRUGS (1)
  1. LUCRIN [Suspect]
     Active Substance: LEUPROLIDE ACETATE
     Indication: ENDOMETRIOSIS
     Route: 058
     Dates: start: 20100831

REACTIONS (3)
  - Incorrect drug administration duration [Unknown]
  - Gastrointestinal disorder [Not Recovered/Not Resolved]
  - Caecum operation [Unknown]

NARRATIVE: CASE EVENT DATE: 20150417
